FAERS Safety Report 4958226-4 (Version None)
Quarter: 2006Q1

REPORT INFORMATION
  Report Type: 
  Country: None (occurrence: None)
  Receive Date: 20060330
  Receipt Date: 20060321
  Transmission Date: 20060701
  Serious: Yes (Disabling)
  Sender: FDA-Public Use
  Company Number: CA-GLAXOSMITHKLINE-A0598877A

PATIENT
  Age: 30 Year
  Sex: Female
  Weight: 67.3 kg

DRUGS (2)
  1. PAXIL [Suspect]
     Indication: POSTPARTUM DEPRESSION
     Dosage: 25MG PER DAY
     Route: 048
     Dates: start: 20050401
  2. NO CONCURRENT MEDICATIONS [Concomitant]

REACTIONS (1)
  - AMNESIA [None]
